FAERS Safety Report 5199586-1 (Version None)
Quarter: 2007Q1

REPORT INFORMATION
  Report Type: 
  Country: None (occurrence: None)
  Receive Date: 20070103
  Receipt Date: 20070103
  Transmission Date: 20070707
  Serious: Yes (Death)
  Sender: FDA-Public Use
  Company Number: None

PATIENT
  Age: 81 Year
  Sex: Male
  Weight: 71.2147 kg

DRUGS (1)
  1. HEPARIN [Suspect]
     Dosage: 25,000 UNITS IV DRIP
     Route: 041
     Dates: start: 20060609, end: 20060612

REACTIONS (8)
  - DIALYSIS [None]
  - GASTROINTESTINAL HAEMORRHAGE [None]
  - HEPARIN-INDUCED THROMBOCYTOPENIA [None]
  - INTERNATIONAL NORMALISED RATIO INCREASED [None]
  - MULTI-ORGAN FAILURE [None]
  - PROTHROMBIN TIME PROLONGED [None]
  - PULMONARY VASCULITIS [None]
  - RENAL FAILURE [None]
